FAERS Safety Report 14069921 (Version 11)
Quarter: 2019Q1

REPORT INFORMATION
  Report Type: Report from Study
  Country: None (occurrence: US)
  Receive Date: 20171011
  Receipt Date: 20190213
  Transmission Date: 20190417
  Serious: Yes (Hospitalization, Other)
  Sender: FDA-Public Use
  Company Number: US-ABBVIE-17K-163-1985099-00

PATIENT
  Sex: Male

DRUGS (3)
  1. HUMIRA [Suspect]
     Active Substance: ADALIMUMAB
     Indication: PSORIASIS
     Route: 058
     Dates: end: 2017
  2. HUMIRA [Suspect]
     Active Substance: ADALIMUMAB
     Route: 058
     Dates: start: 2017
  3. HUMIRA [Suspect]
     Active Substance: ADALIMUMAB
     Route: 058
     Dates: start: 2017, end: 201709

REACTIONS (23)
  - Herpes zoster [Recovered/Resolved]
  - Cellulitis staphylococcal [Recovered/Resolved]
  - Psoriatic arthropathy [Unknown]
  - Drug intolerance [Unknown]
  - Joint swelling [Unknown]
  - Psoriasis [Recovered/Resolved]
  - Limb injury [Unknown]
  - Exposure to toxic agent [Unknown]
  - Skin exfoliation [Recovering/Resolving]
  - Peripheral swelling [Unknown]
  - Psoriasis [Recovering/Resolving]
  - Hip arthroplasty [Unknown]
  - Fall [Unknown]
  - Psoriasis [Recovered/Resolved]
  - Joint stiffness [Unknown]
  - Pain in extremity [Recovering/Resolving]
  - Joint injury [Unknown]
  - Pruritus [Recovering/Resolving]
  - Drug effect incomplete [Unknown]
  - Arthralgia [Recovering/Resolving]
  - Muscle strain [Recovering/Resolving]
  - Adverse food reaction [Unknown]
  - Rash [Unknown]

NARRATIVE: CASE EVENT DATE: 2017
